FAERS Safety Report 16642119 (Version 1)
Quarter: 2019Q3

REPORT INFORMATION
  Report Type: Spontaneous
  Country: US (occurrence: US)
  Receive Date: 20190727
  Receipt Date: 20190727
  Transmission Date: 20191004
  Serious: Yes (Hospitalization, Other)
  Sender: FDA-Public Use
  Company Number: None

PATIENT
  Age: 58 Year
  Sex: Female
  Weight: 67.5 kg

DRUGS (1)
  1. BOTOX [Suspect]
     Active Substance: ONABOTULINUMTOXINA
     Indication: HEADACHE
     Route: 058

REACTIONS (9)
  - Eye pain [None]
  - Visual impairment [None]
  - Pneumonia [None]
  - Spinal pain [None]
  - Skin burning sensation [None]
  - Influenza [None]
  - Dysphagia [None]
  - Paraesthesia [None]
  - Neck pain [None]

NARRATIVE: CASE EVENT DATE: 20190110
